FAERS Safety Report 22271491 (Version 1)
Quarter: 2023Q2

REPORT INFORMATION
  Report Type: Report from Study
  Country: AR (occurrence: AR)
  Receive Date: 20230501
  Receipt Date: 20230501
  Transmission Date: 20230722
  Serious: Yes (Hospitalization, Other)
  Sender: FDA-Public Use
  Company Number: AR-ABBVIE-4747142

PATIENT
  Sex: Male

DRUGS (1)
  1. HUMIRA [Suspect]
     Active Substance: ADALIMUMAB
     Indication: Colitis ulcerative
     Dosage: FORM STRENGTH: 80 MG
     Route: 058
     Dates: start: 20221205, end: 202302

REACTIONS (3)
  - Renal colic [Recovering/Resolving]
  - Frequent bowel movements [Recovering/Resolving]
  - Nephrolithiasis [Recovering/Resolving]
